FAERS Safety Report 14896754 (Version 3)
Quarter: 2018Q3

REPORT INFORMATION
  Report Type: Spontaneous
  Country: US (occurrence: US)
  Receive Date: 20180515
  Receipt Date: 20180706
  Transmission Date: 20181010
  Serious: No
  Sender: FDA-Public Use
  Company Number: US-ALKERMES INC.-ALK-2018-002572

PATIENT
  Age: 33 Year
  Sex: Female

DRUGS (1)
  1. VIVITROL [Suspect]
     Active Substance: NALTREXONE
     Indication: ALCOHOLISM
     Dosage: 380 MG, QMO
     Route: 030
     Dates: start: 20180420, end: 20180420

REACTIONS (10)
  - Malaise [Recovered/Resolved]
  - Injection site haematoma [Not Recovered/Not Resolved]
  - Nausea [Recovered/Resolved]
  - Alcoholism [Not Recovered/Not Resolved]
  - Injection site pain [Unknown]
  - Injection site reaction [Not Recovered/Not Resolved]
  - Injection site induration [Not Recovered/Not Resolved]
  - Injection site nodule [Not Recovered/Not Resolved]
  - Drug ineffective [Not Recovered/Not Resolved]
  - Anxiety [Recovered/Resolved]

NARRATIVE: CASE EVENT DATE: 20180420
